FAERS Safety Report 5312533-4 (Version None)
Quarter: 2007Q2

REPORT INFORMATION
  Report Type: 
  Country: None (occurrence: None)
  Receive Date: 20070430
  Receipt Date: 20070227
  Transmission Date: 20071010
  Serious: No
  Sender: FDA-Public Use
  Company Number: 2007UW00524

PATIENT
  Age: 66 Year
  Sex: Female
  Weight: 69.4 kg

DRUGS (12)
  1. NEXIUM [Suspect]
     Indication: GASTROOESOPHAGEAL REFLUX DISEASE
     Route: 048
  2. NEXIUM [Suspect]
     Indication: EROSIVE OESOPHAGITIS
     Route: 048
  3. NEXIUM [Suspect]
     Route: 048
  4. NEXIUM [Suspect]
     Route: 048
  5. ESTRACE [Concomitant]
  6. NASONEX [Concomitant]
  7. ADVAIR DISKUS 100/50 [Concomitant]
  8. MULTI-VITAMIN [Concomitant]
  9. CALTRATE 600 [Concomitant]
  10. IRON [Concomitant]
  11. ASCORBIC ACID [Concomitant]
  12. XANAX [Concomitant]

REACTIONS (3)
  - ARTHRALGIA [None]
  - OSTEOPOROSIS [None]
  - STOMACH DISCOMFORT [None]
